FAERS Safety Report 17148589 (Version 1)
Quarter: 2019Q4

REPORT INFORMATION
  Report Type: Spontaneous
  Country: SE (occurrence: SE)
  Receive Date: 20191213
  Receipt Date: 20191213
  Transmission Date: 20200122
  Serious: Yes (Hospitalization, Other)
  Sender: FDA-Public Use
  Company Number: SE-SA-2019SA338077

PATIENT
  Sex: Female

DRUGS (3)
  1. PROPAVAN [Suspect]
     Active Substance: PROPIOMAZINE
     Dosage: 24 UNIT
     Route: 048
     Dates: start: 20180818, end: 20180818
  2. IMOVANE [Suspect]
     Active Substance: ZOPICLONE
     Dosage: 2 UNIT
     Route: 048
     Dates: start: 20180818, end: 20180818
  3. ZOLPIDEM TARTRATE. [Suspect]
     Active Substance: ZOLPIDEM TARTRATE
     Dosage: 10 UNIT
     Route: 048
     Dates: start: 20180818, end: 20180818

REACTIONS (2)
  - Intentional overdose [Unknown]
  - Intentional self-injury [Unknown]

NARRATIVE: CASE EVENT DATE: 20180818
